FAERS Safety Report 19945020 (Version 2)
Quarter: 2021Q4

REPORT INFORMATION
  Report Type: Spontaneous
  Country: US (occurrence: US)
  Receive Date: 20211012
  Receipt Date: 20211029
  Transmission Date: 20220303
  Serious: No
  Sender: FDA-Public Use
  Company Number: US-GLAXOSMITHKLINE-USCH2021067961

PATIENT
  Sex: Female

DRUGS (3)
  1. ADVIL PM [Suspect]
     Active Substance: DIPHENHYDRAMINE CITRATE\IBUPROFEN
     Indication: Insomnia
     Dosage: UNK
  2. TUMS EX [Suspect]
     Active Substance: CALCIUM CARBONATE
     Indication: Dyspepsia
     Dosage: UNK
  3. TUMS EX [Suspect]
     Active Substance: CALCIUM CARBONATE
     Indication: Abdominal pain upper

REACTIONS (3)
  - Exposure during pregnancy [Unknown]
  - Intentional product misuse [Unknown]
  - Product use in unapproved indication [Unknown]
